FAERS Safety Report 8499132-0 (Version None)
Quarter: 2012Q3

REPORT INFORMATION
  Report Type: 
  Country: None (occurrence: None)
  Receive Date: 20120710
  Receipt Date: 20120704
  Transmission Date: 20120928
  Serious: Yes (Life-Threatening, Other)
  Sender: FDA-Public Use
  Company Number: CA-ELI_LILLY_AND_COMPANY-CA201207001437

PATIENT
  Sex: Female

DRUGS (1)
  1. HUMULIN 70/30 [Suspect]
     Dosage: UNK

REACTIONS (8)
  - CARDIAC ARREST [None]
  - FALL [None]
  - MALAISE [None]
  - NIGHTMARE [None]
  - DRUG DEPENDENCE [None]
  - WHEEZING [None]
  - COUGH [None]
  - RETCHING [None]
